FAERS Safety Report 6197156-X (Version None)
Quarter: 2009Q2

REPORT INFORMATION
  Report Type: 
  Country: None (occurrence: None)
  Receive Date: 20090520
  Receipt Date: 20090512
  Transmission Date: 20091009
  Serious: No
  Sender: FDA-Public Use
  Company Number: US-B.I. PHARMACEUTICALS,INC./RIDGEFIELD-2009-BP-05980BP

PATIENT
  Age: 82 Year
  Sex: Female

DRUGS (3)
  1. COMBIVENT [Suspect]
     Indication: DYSPNOEA
     Route: 055
     Dates: start: 20060101, end: 20090512
  2. XANAX [Concomitant]
     Indication: ANXIETY
     Dosage: 2.5MG
     Route: 048
     Dates: start: 19970101
  3. PLENDIL [Concomitant]
     Indication: HYPERTENSION
     Dosage: 2.5MG
     Route: 048
     Dates: start: 19970101

REACTIONS (1)
  - CHANGE OF BOWEL HABIT [None]
